FAERS Safety Report 18762532 (Version 1)
Quarter: 2021Q1

REPORT INFORMATION
  Report Type: Spontaneous
  Country: US (occurrence: US)
  Receive Date: 20210119
  Receipt Date: 20210119
  Transmission Date: 20210419
  Serious: No
  Sender: FDA-Public Use
  Company Number: None

PATIENT
  Sex: Female

DRUGS (1)
  1. ENBREL [Suspect]
     Active Substance: ETANERCEPT
     Indication: PSORIATIC ARTHROPATHY
     Dosage: ?          OTHER FREQUENCY:WEEKLY;?
     Dates: start: 20201116

REACTIONS (5)
  - Injection site pain [None]
  - Injection site plaque [None]
  - Drug ineffective [None]
  - Lupus-like syndrome [None]
  - Nonspecific reaction [None]
